FAERS Safety Report 6427869-3 (Version None)
Quarter: 2009Q4

REPORT INFORMATION
  Report Type: 
  Country: None (occurrence: None)
  Receive Date: 20091104
  Receipt Date: 20091104
  Transmission Date: 20100525
  Serious: Yes (Hospitalization)
  Sender: FDA-Public Use
  Company Number: None

PATIENT
  Age: 78 Year
  Sex: Male
  Weight: 86.1 kg

DRUGS (2)
  1. LISINOPRIL [Suspect]
     Indication: HYPERTENSION
     Dosage: 40 MG EVERY DAY PO
     Route: 048
     Dates: start: 20050427, end: 20091005
  2. METOCLOPRAMIDE [Suspect]
     Indication: GASTROINTESTINAL HYPOMOTILITY
     Dosage: 5 MG QID OTHER
     Route: 050
     Dates: start: 20070222, end: 20091005

REACTIONS (6)
  - ANGIOEDEMA [None]
  - DISCOMFORT [None]
  - MOANING [None]
  - MUSCLE CONTRACTURE [None]
  - TACHYCARDIA [None]
  - TORTICOLLIS [None]
